FAERS Safety Report 20602983 (Version 2)
Quarter: 2022Q3

REPORT INFORMATION
  Report Type: Report from Study
  Country: CA (occurrence: CA)
  Receive Date: 20220316
  Receipt Date: 20220808
  Transmission Date: 20221027
  Serious: Yes (Death, Life-Threatening, Other)
  Sender: FDA-Public Use
  Company Number: CA-PFIZER INC-2021634190

PATIENT
  Age: 23 Year
  Sex: Female
  Weight: 76.4 kg

DRUGS (9)
  1. HYDROMORPHONE HYDROCHLORIDE [Suspect]
     Active Substance: HYDROMORPHONE HYDROCHLORIDE
     Indication: Headache
     Dosage: UNK
     Route: 065
     Dates: start: 2020
  2. HYDROMORPHONE HYDROCHLORIDE [Suspect]
     Active Substance: HYDROMORPHONE HYDROCHLORIDE
     Indication: Back pain
  3. DEXAMETHASONE [Suspect]
     Active Substance: DEXAMETHASONE
     Indication: Brain oedema
     Dosage: 1 MG, 1X/DAY
     Route: 048
     Dates: start: 2020
  4. DEXAMETHASONE [Suspect]
     Active Substance: DEXAMETHASONE
     Indication: Headache
  5. DEXAMETHASONE [Suspect]
     Active Substance: DEXAMETHASONE
     Indication: Back pain
  6. TRAMETINIB [Suspect]
     Active Substance: TRAMETINIB
     Indication: Brain stem glioma
     Dosage: 2 MG, DAILY
     Route: 048
     Dates: start: 2020, end: 2020
  7. TRAMETINIB [Suspect]
     Active Substance: TRAMETINIB
     Dosage: 2 MG
     Route: 048
     Dates: start: 2020, end: 2020
  8. HALOPERIDOL [Concomitant]
     Active Substance: HALOPERIDOL
     Dosage: UNK
     Route: 065
  9. PREGABALIN [Concomitant]
     Active Substance: PREGABALIN
     Dosage: 50 MG, 2X/DAY
     Route: 048
     Dates: start: 2020

REACTIONS (8)
  - Death [Fatal]
  - Hepatotoxicity [Recovering/Resolving]
  - Brain stem glioma [Unknown]
  - Dyspnoea [Unknown]
  - General physical health deterioration [Unknown]
  - Malignant neoplasm progression [Unknown]
  - Serum ferritin increased [Recovering/Resolving]
  - Pneumonia [Unknown]

NARRATIVE: CASE EVENT DATE: 20200101
